FAERS Safety Report 12237990 (Version 1)
Quarter: 2016Q2

REPORT INFORMATION
  Report Type: Spontaneous
  Country: US (occurrence: None)
  Receive Date: 20160404
  Receipt Date: 20160404
  Transmission Date: 20160815
  Serious: Yes (Other)
  Sender: FDA-Public Use
  Company Number: None

PATIENT
  Age: 31 Year
  Sex: Female
  Weight: 65.77 kg

DRUGS (6)
  1. NARATRIPTAN [Suspect]
     Active Substance: NARATRIPTAN HYDROCHLORIDE
     Indication: MIGRAINE
     Dosage: 9 TABLETS AS NEEDED
     Route: 048
     Dates: start: 20160402, end: 20160402
  2. TRAMADOL. [Concomitant]
     Active Substance: TRAMADOL
  3. HYDROXYZINE [Concomitant]
     Active Substance: HYDROXYZINE\HYDROXYZINE HYDROCHLORIDE
  4. ATENOLOL. [Concomitant]
     Active Substance: ATENOLOL
  5. ENSURE [Concomitant]
     Active Substance: AMINO ACIDS\DEXTROSE\ELECTROLYTES NOS\SOYBEAN OIL\VITAMINS
  6. TEGRETOL [Concomitant]
     Active Substance: CARBAMAZEPINE

REACTIONS (3)
  - Hiccups [None]
  - Dyspepsia [None]
  - Vomiting [None]

NARRATIVE: CASE EVENT DATE: 20160402
